FAERS Safety Report 6414371-8 (Version None)
Quarter: 2009Q4

REPORT INFORMATION
  Report Type: 
  Country: None (occurrence: None)
  Receive Date: 20091021
  Receipt Date: 20091005
  Transmission Date: 20100525
  Serious: Yes (Hospitalization)
  Sender: FDA-Public Use
  Company Number: 1000009495

PATIENT
  Age: 51 Year
  Sex: Female
  Weight: 81 kg

DRUGS (5)
  1. CITALOPRAM HYDROBROMIDE [Suspect]
     Dosage: 20 MG (20 MG,  1 IN 1 D), ORAL
     Route: 048
     Dates: end: 20090510
  2. SOLIAN(TABLETS) [Suspect]
     Dosage: 400 MG (400 MG, 1 IN 1 D), ORAL
     Route: 048
     Dates: end: 20090510
  3. TEMESTA (TABLETS) [Concomitant]
  4. OMEX HEXAL (TABLETS) [Concomitant]
  5. NEUROBION FORTE [Concomitant]

REACTIONS (7)
  - BLOOD HOMOCYSTEINE INCREASED [None]
  - BLOOD PRESSURE DIASTOLIC INCREASED [None]
  - BLOOD SODIUM INCREASED [None]
  - BODY TEMPERATURE INCREASED [None]
  - CHILLS [None]
  - GAMMA-GLUTAMYLTRANSFERASE INCREASED [None]
  - SOMNOLENCE [None]
